FAERS Safety Report 17157704 (Version 1)
Quarter: 2019Q4

REPORT INFORMATION
  Report Type: Spontaneous
  Country: US (occurrence: US)
  Receive Date: 20191213
  Receipt Date: 20191213
  Transmission Date: 20200122
  Serious: Yes (Disabling)
  Sender: FDA-Public Use
  Company Number: None

PATIENT
  Age: 67 Year
  Sex: Male
  Weight: 72 kg

DRUGS (12)
  1. ROSUVASTATIN. [Concomitant]
     Active Substance: ROSUVASTATIN
  2. JANUVIA [Concomitant]
     Active Substance: SITAGLIPTIN PHOSPHATE
  3. METFORMIN [Concomitant]
     Active Substance: METFORMIN HYDROCHLORIDE
  4. TIMOLOL. [Concomitant]
     Active Substance: TIMOLOL
  5. GLUCOSAMINE [Concomitant]
     Active Substance: GLUCOSAMINE
  6. MSM [Concomitant]
     Active Substance: DIMETHYL SULFONE
  7. LUTEIN WITH BILBERRY [Concomitant]
  8. TRULICITY [Suspect]
     Active Substance: DULAGLUTIDE
     Indication: DIABETES MELLITUS
     Dosage: ?          QUANTITY:.75 INJECTION(S);OTHER FREQUENCY:WEEKLY;?
     Route: 058
     Dates: start: 20190830, end: 20191004
  9. HYALURONIC ACID [Concomitant]
     Active Substance: HYALURONIC ACID
  10. GARLIC. [Concomitant]
     Active Substance: GARLIC
  11. LOSARTAN. [Concomitant]
     Active Substance: LOSARTAN
  12. JARDIANCE [Concomitant]
     Active Substance: EMPAGLIFLOZIN

REACTIONS (9)
  - Gastrooesophageal reflux disease [None]
  - Dyspepsia [None]
  - Diarrhoea [None]
  - Glycosylated haemoglobin increased [None]
  - Genital pain [None]
  - Nausea [None]
  - Tinea cruris [None]
  - Constipation [None]
  - Haemorrhoids [None]

NARRATIVE: CASE EVENT DATE: 20190830
